FAERS Safety Report 6241414-7 (Version None)
Quarter: 2009Q2

REPORT INFORMATION
  Report Type: 
  Country: None (occurrence: None)
  Receive Date: 20090619
  Receipt Date: 20090619
  Transmission Date: 20091009
  Serious: Yes (Other)
  Sender: FDA-Public Use
  Company Number: None

PATIENT
  Age: 58 Year
  Sex: Female
  Weight: 61.2356 kg

DRUGS (2)
  1. ZICAM COLD REMEDY NASAL GEL ZICAM LLC [Suspect]
     Indication: NASOPHARYNGITIS
  2. ZICAM COLD REMEDY NASAL SPRAY [Concomitant]

REACTIONS (2)
  - ANOSMIA [None]
  - RHINORRHOEA [None]
